FAERS Safety Report 8278909-0 (Version None)
Quarter: 2012Q2

REPORT INFORMATION
  Report Type: 
  Country: None (occurrence: None)
  Receive Date: 20120412
  Receipt Date: 20120228
  Transmission Date: 20120825
  Serious: No
  Sender: FDA-Public Use
  Company Number: US-ASTRAZENECA-2012SE13734

PATIENT
  Age: 75 Year
  Sex: Female
  Weight: 72.6 kg

DRUGS (5)
  1. NEXIUM [Suspect]
     Indication: GASTROOESOPHAGEAL REFLUX DISEASE
     Route: 048
     Dates: start: 20120225
  2. CLONIDINE [Concomitant]
     Indication: BLOOD PRESSURE SYSTOLIC INCREASED
  3. PENTOXIFYLLINE [Concomitant]
     Indication: PROMOTION OF PERIPHERAL CIRCULATION
  4. VITAMIN B3 [Concomitant]
     Indication: VITAMIN SUPPLEMENTATION
  5. ASPIRIN [Concomitant]

REACTIONS (1)
  - BLOOD PRESSURE INCREASED [None]
